FAERS Safety Report 25710364 (Version 1)
Quarter: 2025Q3

REPORT INFORMATION
  Report Type: Spontaneous
  Country: US (occurrence: US)
  Receive Date: 20250821
  Receipt Date: 20250821
  Transmission Date: 20251020
  Serious: No
  Sender: MYLAN
  Company Number: US-MYLANLABS-2025M1069514

PATIENT
  Sex: Male
  Weight: 73.94 kg

DRUGS (20)
  1. TYRVAYA [Suspect]
     Active Substance: VARENICLINE TARTRATE
     Indication: Dry eye
  2. TYRVAYA [Suspect]
     Active Substance: VARENICLINE TARTRATE
     Route: 045
  3. TYRVAYA [Suspect]
     Active Substance: VARENICLINE TARTRATE
     Route: 045
  4. TYRVAYA [Suspect]
     Active Substance: VARENICLINE TARTRATE
  5. CEQUA [Concomitant]
     Active Substance: CYCLOSPORINE
     Dosage: UNK, BID (TWICE DAILY)
  6. CEQUA [Concomitant]
     Active Substance: CYCLOSPORINE
     Dosage: UNK, BID (TWICE DAILY)
     Route: 065
  7. CEQUA [Concomitant]
     Active Substance: CYCLOSPORINE
     Dosage: UNK, BID (TWICE DAILY)
     Route: 065
  8. CEQUA [Concomitant]
     Active Substance: CYCLOSPORINE
     Dosage: UNK, BID (TWICE DAILY)
  9. VYZULTA [Concomitant]
     Active Substance: LATANOPROSTENE BUNOD
     Dosage: 1 GTT DROPS, PM (ONE DROP IN EACH EYE AT NIGHT)
  10. VYZULTA [Concomitant]
     Active Substance: LATANOPROSTENE BUNOD
     Dosage: 1 GTT DROPS, PM (ONE DROP IN EACH EYE AT NIGHT)
     Route: 047
  11. VYZULTA [Concomitant]
     Active Substance: LATANOPROSTENE BUNOD
     Dosage: 1 GTT DROPS, PM (ONE DROP IN EACH EYE AT NIGHT)
     Route: 047
  12. VYZULTA [Concomitant]
     Active Substance: LATANOPROSTENE BUNOD
     Dosage: 1 GTT DROPS, PM (ONE DROP IN EACH EYE AT NIGHT)
  13. TOBRAMYCIN [Concomitant]
     Active Substance: TOBRAMYCIN
  14. TOBRAMYCIN [Concomitant]
     Active Substance: TOBRAMYCIN
     Route: 065
  15. TOBRAMYCIN [Concomitant]
     Active Substance: TOBRAMYCIN
     Route: 065
  16. TOBRAMYCIN [Concomitant]
     Active Substance: TOBRAMYCIN
  17. REFRESH CLASSIC [Concomitant]
     Active Substance: POLYVINYL ALCOHOL\POVIDONE
  18. REFRESH CLASSIC [Concomitant]
     Active Substance: POLYVINYL ALCOHOL\POVIDONE
     Route: 065
  19. REFRESH CLASSIC [Concomitant]
     Active Substance: POLYVINYL ALCOHOL\POVIDONE
     Route: 065
  20. REFRESH CLASSIC [Concomitant]
     Active Substance: POLYVINYL ALCOHOL\POVIDONE

REACTIONS (2)
  - Rhinorrhoea [Unknown]
  - Sneezing [Unknown]
